FAERS Safety Report 11078342 (Version 1)
Quarter: 2015Q2

REPORT INFORMATION
  Report Type: Report from Study
  Country: US (occurrence: US)
  Receive Date: 20150430
  Receipt Date: 20150430
  Transmission Date: 20150821
  Serious: Yes (Other)
  Sender: FDA-Public Use
  Company Number: PHEH2015US001411

PATIENT
  Sex: Male
  Weight: 97.52 kg

DRUGS (2)
  1. EXJADE [Suspect]
     Active Substance: DEFERASIROX
     Dosage: 4 DF (2000 MG), QD (4 TABLETS DISSOLVED)
     Route: 048
     Dates: start: 20141103
  2. EXJADE [Suspect]
     Active Substance: DEFERASIROX
     Indication: MYELODYSPLASTIC SYNDROME
     Dosage: 4 DF (2000 MG), QD (4 TABLETS DISSOLVED)
     Route: 048
     Dates: start: 20141103

REACTIONS (3)
  - Gastrointestinal disorder [Unknown]
  - Fatigue [Unknown]
  - Diarrhoea [Unknown]
